FAERS Safety Report 5357906-9 (Version None)
Quarter: 2007Q2

REPORT INFORMATION
  Report Type: 
  Country: None (occurrence: None)
  Receive Date: 20070612
  Receipt Date: 20070525
  Transmission Date: 20071010
  Serious: No
  Sender: FDA-Public Use
  Company Number: DAV-AE-MTX-07-017

PATIENT
  Age: 72 Year
  Sex: Male
  Weight: 83.9154 kg

DRUGS (10)
  1. METHOTREXATE [Suspect]
     Indication: RHEUMATOID ARTHRITIS
     Dosage: 3 TABS PER WK - ORAL
     Route: 048
     Dates: start: 20070501, end: 20070524
  2. FOLIC ACID [Suspect]
     Indication: RHEUMATOID ARTHRITIS
     Dosage: 1 TAB - QD - ORAL
     Route: 048
     Dates: start: 20070501, end: 20070524
  3. FOSAMAX [Suspect]
     Dosage: 70MG WEEKLY - ORAL
     Route: 048
     Dates: start: 20070501, end: 20070524
  4. PREPARATION H [Concomitant]
  5. BENADRYL [Concomitant]
  6. CADUET [Concomitant]
  7. LISINOPRIL [Concomitant]
  8. ISOSORBIDE DINITRATE [Concomitant]
  9. WARFARIN SODIUM [Concomitant]
  10. METOPROLOL SUCCINATE [Concomitant]

REACTIONS (1)
  - HYPERSENSITIVITY [None]
